FAERS Safety Report 16112464 (Version 1)
Quarter: 2019Q1

REPORT INFORMATION
  Report Type: Spontaneous
  Country: US (occurrence: US)
  Receive Date: 20190325
  Receipt Date: 20190325
  Transmission Date: 20190418
  Serious: No
  Sender: FDA-Public Use
  Company Number: US-PFIZER INC-2019116395

PATIENT
  Age: 55 Year
  Sex: Male

DRUGS (2)
  1. DILANTIN [Suspect]
     Active Substance: PHENYTOIN
     Indication: EPILEPSY
     Dosage: 200 MG, CYCLIC [TAKE 2 (200MG) THEN 3 (300MG) THEN 2 (200MG) THEN 3 (300MG)]
  2. DILANTIN [Suspect]
     Active Substance: PHENYTOIN
     Dosage: 300 MG, CYCLIC [TAKE 2 (200MG) THEN 3 (300MG) THEN 2 (200MG) THEN 3 (300MG)]

REACTIONS (7)
  - Anticonvulsant drug level increased [Unknown]
  - Nasopharyngitis [Unknown]
  - Metabolic disorder [Unknown]
  - Intentional product misuse [Unknown]
  - Weight decreased [Unknown]
  - Asthenia [Unknown]
  - Product prescribing issue [Unknown]
